FAERS Safety Report 8975445 (Version 1)
Quarter: 2012Q4

REPORT INFORMATION
  Report Type: 
  Country: CA (occurrence: CA)
  Receive Date: 20121219
  Receipt Date: 20121219
  Transmission Date: 20130627
  Serious: Yes (Hospitalization)
  Sender: FDA-Public Use
  Company Number: CA-ELI_LILLY_AND_COMPANY-CA201212002771

PATIENT
  Age: 58 Year
  Sex: Male

DRUGS (10)
  1. FORTEO [Suspect]
     Indication: OSTEOPOROSIS
     Dosage: 20 ug, UNK
     Route: 058
     Dates: start: 20121004
  2. METHOTREXATE [Concomitant]
  3. CELEBREX [Concomitant]
  4. PLAQUENIL [Concomitant]
  5. DILAUDID [Concomitant]
  6. PANTOLOC                           /01263204/ [Concomitant]
  7. CALCIUM [Concomitant]
  8. VITAMIN D NOS [Concomitant]
  9. VITAMIN B [Concomitant]
  10. MULTIVITAMIN [Concomitant]

REACTIONS (1)
  - Joint swelling [Not Recovered/Not Resolved]
